FAERS Safety Report 5643812-9 (Version None)
Quarter: 2008Q1

REPORT INFORMATION
  Report Type: 
  Country: None (occurrence: None)
  Receive Date: 20080228
  Receipt Date: 20080222
  Transmission Date: 20080703
  Serious: Yes (Hospitalization)
  Sender: FDA-Public Use
  Company Number: IT-MERCK-0802ITA00021

PATIENT
  Age: 63 Year
  Sex: Female

DRUGS (3)
  1. SINGULAIR [Suspect]
     Indication: ASTHMA
     Route: 048
     Dates: start: 19990101
  2. [THERAPY UNSPECIFIED] [Concomitant]
     Route: 065
  3. TICLOPIDINE HYDROCHLORIDE [Concomitant]
     Route: 065
     Dates: end: 20070101

REACTIONS (1)
  - GASTRITIS HAEMORRHAGIC [None]
